FAERS Safety Report 5371619-9 (Version None)
Quarter: 2007Q2

REPORT INFORMATION
  Report Type: 
  Country: None (occurrence: None)
  Receive Date: 20070615
  Receipt Date: 20060726
  Transmission Date: 20071010
  Serious: Yes (Other)
  Sender: FDA-Public Use
  Company Number: 200613316US

PATIENT
  Age: 62 Year
  Sex: Female

DRUGS (9)
  1. LANTUS [Suspect]
     Indication: DIABETES MELLITUS INSULIN-DEPENDENT
     Dosage: 15 IU HS
     Dates: start: 20040101, end: 20060307
  2. LANTUS [Suspect]
     Indication: DIABETES MELLITUS INSULIN-DEPENDENT
     Dosage: 16 IU HS
     Dates: start: 20060308
  3. HUMALOG [Suspect]
     Dates: start: 20060406
  4. ACTONEL [Suspect]
     Dosage: QW
  5. HUMALOG [Concomitant]
  6. ATENOLOL [Concomitant]
  7. ALTACE [Concomitant]
  8. ZOCOR [Concomitant]
  9. ASPIRIN [Concomitant]

REACTIONS (5)
  - BLOOD GLUCOSE [None]
  - BLOOD GLUCOSE INCREASED [None]
  - HYPOGLYCAEMIA [None]
  - NOCTURIA [None]
  - VISUAL DISTURBANCE [None]
